FAERS Safety Report 9448895 (Version 1)
Quarter: 2013Q3

REPORT INFORMATION
  Report Type: Spontaneous
  Country: FR (occurrence: FR)
  Receive Date: 20130808
  Receipt Date: 20130808
  Transmission Date: 20140515
  Serious: Yes (Hospitalization, Disabling)
  Sender: FDA-Public Use
  Company Number: FR-BRISTOL-MYERS SQUIBB COMPANY-19157924

PATIENT
  Age: 44 Year
  Sex: Female

DRUGS (4)
  1. REYATAZ [Suspect]
     Route: 048
     Dates: start: 2004, end: 20121130
  2. CERAZETTE [Suspect]
     Dates: start: 201207, end: 20121112
  3. NORVIR [Suspect]
     Dates: start: 2004, end: 20121130
  4. TRUVADA [Suspect]
     Dates: start: 2004, end: 20121130

REACTIONS (1)
  - Acute myocardial infarction [Recovered/Resolved with Sequelae]
